FAERS Safety Report 7617938-4 (Version None)
Quarter: 2011Q3

REPORT INFORMATION
  Report Type: 
  Country: None (occurrence: None)
  Receive Date: 20110718
  Receipt Date: 20110712
  Transmission Date: 20111222
  Serious: Yes (Other)
  Sender: FDA-Public Use
  Company Number: US-SANOFI-AVENTIS-2011SA041175

PATIENT
  Age: 60 Year
  Sex: Male
  Weight: 81.4 kg

DRUGS (15)
  1. ASPIRIN [Concomitant]
  2. COREG [Concomitant]
     Route: 065
     Dates: start: 20100101
  3. PLAVIX [Suspect]
     Route: 048
     Dates: start: 20110527
  4. RANOLAZINE [Concomitant]
     Route: 065
     Dates: start: 20110501, end: 20110617
  5. GLUCOVANCE [Concomitant]
  6. LIPITOR [Concomitant]
  7. MULTI-VITAMINS [Concomitant]
  8. FISH OIL [Concomitant]
  9. PLAVIX [Suspect]
     Indication: PLATELET AGGREGATION INHIBITION
     Route: 048
     Dates: start: 20050401, end: 20110517
  10. PLAVIX [Suspect]
     Route: 048
     Dates: start: 20110527
  11. LANTUS [Concomitant]
  12. PIOGLITAZONE [Concomitant]
  13. NITROSTAT [Concomitant]
  14. PLAVIX [Suspect]
     Indication: STENT PLACEMENT
     Route: 048
     Dates: start: 20050401, end: 20110517
  15. LISINOPRIL [Concomitant]
     Indication: RENAL DISORDER
     Route: 065
     Dates: start: 20080101

REACTIONS (2)
  - ANGINA PECTORIS [None]
  - ARTERIAL OCCLUSIVE DISEASE [None]
